FAERS Safety Report 17305750 (Version 1)
Quarter: 2020Q1

REPORT INFORMATION
  Report Type: Spontaneous
  Country: US (occurrence: US)
  Receive Date: 20200123
  Receipt Date: 20200123
  Transmission Date: 20200409
  Serious: Yes (Death)
  Sender: FDA-Public Use
  Company Number: US-BTCP PHARMA-BTC202001-000003

PATIENT
  Age: 44 Year
  Sex: Female
  Weight: 68.03 kg

DRUGS (4)
  1. FENTANYL. [Concomitant]
     Active Substance: FENTANYL
     Indication: OVARIAN CANCER METASTATIC
  2. DILAUDID [Concomitant]
     Active Substance: HYDROMORPHONE HYDROCHLORIDE
     Indication: OVARIAN CANCER METASTATIC
  3. SUBSYS [Suspect]
     Active Substance: FENTANYL
     Indication: BREAKTHROUGH PAIN
     Route: 060
     Dates: start: 201710, end: 201803
  4. ATIVAN [Concomitant]
     Active Substance: LORAZEPAM
     Indication: OVARIAN CANCER METASTATIC

REACTIONS (1)
  - Neoplasm progression [Fatal]

NARRATIVE: CASE EVENT DATE: 201803
